FAERS Safety Report 24440583 (Version 1)
Quarter: 2024Q4

REPORT INFORMATION
  Report Type: Spontaneous
  Country: GB (occurrence: GB)
  Receive Date: 20241016
  Receipt Date: 20241016
  Transmission Date: 20250114
  Serious: Yes (Hospitalization)
  Sender: ACCORD
  Company Number: None

PATIENT
  Age: 28 Year
  Sex: Female

DRUGS (3)
  1. DOCETAXEL [Suspect]
     Active Substance: DOCETAXEL
     Indication: Metastatic neoplasm
     Dosage: UNK
  2. TRASTUZUMAB [Suspect]
     Active Substance: TRASTUZUMAB
     Indication: Metastatic neoplasm
     Dosage: UNK
  3. PERTUZUMAB [Suspect]
     Active Substance: PERTUZUMAB
     Indication: Metastatic neoplasm
     Dosage: UNK

REACTIONS (3)
  - Vascular device infection [Unknown]
  - Pyrexia [Unknown]
  - Maternal exposure timing unspecified [Unknown]
